FAERS Safety Report 13486454 (Version 2)
Quarter: 2017Q2

REPORT INFORMATION
  Report Type: Spontaneous
  Country: CN (occurrence: CN)
  Receive Date: 20170426
  Receipt Date: 20170428
  Transmission Date: 20170830
  Serious: Yes (Other)
  Sender: FDA-Public Use
  Company Number: CN-BAXTER-2017BAX017527

PATIENT
  Age: 42 Year
  Sex: Male
  Weight: 70 kg

DRUGS (4)
  1. 20% MANNITOL INJECTION [Suspect]
     Active Substance: MANNITOL
     Indication: DEHYDRATION
  2. 20% MANNITOL INJECTION [Suspect]
     Active Substance: MANNITOL
     Indication: SWELLING
  3. 20% MANNITOL INJECTION [Suspect]
     Active Substance: MANNITOL
     Indication: SPINAL OSTEOARTHRITIS
     Route: 041
     Dates: start: 20161209, end: 20161209
  4. LORNOXICAM [Suspect]
     Active Substance: LORNOXICAM
     Indication: PAIN MANAGEMENT
     Route: 042
     Dates: start: 20161209, end: 20161209

REACTIONS (1)
  - Rash pruritic [Recovered/Resolved]

NARRATIVE: CASE EVENT DATE: 20161209
